FAERS Safety Report 15688740 (Version 1)
Quarter: 2018Q4

REPORT INFORMATION
  Report Type: Report from Study
  Country: US (occurrence: US)
  Receive Date: 20181205
  Receipt Date: 20181205
  Transmission Date: 20190205
  Serious: Yes (Hospitalization, Other)
  Sender: FDA-Public Use
  Company Number: US-UCBSA-2018053276

PATIENT
  Age: 31 Year
  Sex: Female

DRUGS (2)
  1. ASPIRIN. [Concomitant]
     Active Substance: ASPIRIN
     Indication: PRODUCT USED FOR UNKNOWN INDICATION
     Dosage: UNK
  2. LEVETIRACETAM. [Suspect]
     Active Substance: LEVETIRACETAM
     Indication: PRODUCT USED FOR UNKNOWN INDICATION
     Dosage: UNK

REACTIONS (14)
  - Tinnitus [Unknown]
  - Gastrointestinal disorder [Unknown]
  - Chest pain [Unknown]
  - Fatigue [Unknown]
  - Vertigo [Unknown]
  - Nausea [Unknown]
  - Cough [Unknown]
  - Back pain [Unknown]
  - Muscular weakness [Unknown]
  - Gastrointestinal haemorrhage [Unknown]
  - Dyspnoea [Unknown]
  - Peripheral swelling [Unknown]
  - Paraesthesia [Unknown]
  - Dysphagia [Unknown]
